FAERS Safety Report 16483038 (Version 2)
Quarter: 2019Q3

REPORT INFORMATION
  Report Type: Spontaneous
  Country: JP (occurrence: JP)
  Receive Date: 20190627
  Receipt Date: 20190709
  Transmission Date: 20191004
  Serious: Yes (Hospitalization, Disabling, Other)
  Sender: FDA-Public Use
  Company Number: JP-ASTRAZENECA-2019SE40120

PATIENT
  Age: 80 Year
  Sex: Female
  Weight: 50 kg

DRUGS (10)
  1. IRESSA [Suspect]
     Active Substance: GEFITINIB
     Indication: LUNG ADENOCARCINOMA
     Route: 048
     Dates: end: 20170326
  2. TAGRISSO [Suspect]
     Active Substance: OSIMERTINIB
     Indication: NON-SMALL CELL LUNG CANCER
     Route: 048
     Dates: start: 20180813
  3. AMLODIPINE [Concomitant]
     Active Substance: AMLODIPINE BESYLATE
     Indication: HYPERTENSION
     Route: 048
     Dates: start: 2013, end: 20180908
  4. NEXIUM [Concomitant]
     Active Substance: ESOMEPRAZOLE MAGNESIUM
     Indication: GASTROOESOPHAGEAL REFLUX DISEASE
     Route: 048
     Dates: start: 2013
  5. TAGRISSO [Suspect]
     Active Substance: OSIMERTINIB
     Indication: NON-SMALL CELL LUNG CANCER
     Route: 048
     Dates: start: 201812, end: 20190305
  6. TARCEVA [Concomitant]
     Active Substance: ERLOTINIB HYDROCHLORIDE
     Indication: NON-SMALL CELL LUNG CANCER
     Route: 048
     Dates: start: 20180409, end: 20180812
  7. IRESSA [Suspect]
     Active Substance: GEFITINIB
     Indication: LUNG ADENOCARCINOMA
     Route: 048
     Dates: start: 20160316
  8. TARCEVA [Concomitant]
     Active Substance: ERLOTINIB HYDROCHLORIDE
     Indication: NON-SMALL CELL LUNG CANCER
     Route: 048
     Dates: start: 20170410, end: 20180408
  9. CRESTOR [Concomitant]
     Active Substance: ROSUVASTATIN CALCIUM
     Indication: HYPERLIPIDAEMIA
     Route: 048
     Dates: start: 2013, end: 20181105
  10. TARCEVA [Concomitant]
     Active Substance: ERLOTINIB HYDROCHLORIDE
     Indication: NON-SMALL CELL LUNG CANCER
     Route: 048
     Dates: start: 20170327, end: 20170402

REACTIONS (23)
  - Metastases to central nervous system [Unknown]
  - Pleurisy [Unknown]
  - Decreased appetite [Unknown]
  - Dyspnoea [Unknown]
  - Stress cardiomyopathy [Recovered/Resolved]
  - Hepatic function abnormal [Unknown]
  - Product dose omission [Unknown]
  - Metastases to bone [Unknown]
  - Chondrocalcinosis pyrophosphate [Unknown]
  - Parkinsonism [Unknown]
  - Thyroid function test abnormal [Unknown]
  - Atrial fibrillation [Not Recovered/Not Resolved]
  - Long QT syndrome [Recovering/Resolving]
  - Pleural effusion [Unknown]
  - Malignant neoplasm progression [Unknown]
  - Malignant pleural effusion [Unknown]
  - Metastases to pleura [Unknown]
  - Coronary artery occlusion [Unknown]
  - Cardiac failure congestive [Recovering/Resolving]
  - Meningitis [Unknown]
  - Pyrexia [Unknown]
  - Trousseau^s syndrome [Unknown]
  - Off label use [Unknown]

NARRATIVE: CASE EVENT DATE: 20190204
